FAERS Safety Report 8824771 (Version 1)
Quarter: 2012Q4

REPORT INFORMATION
  Report Type: 
  Country: FR (occurrence: FR)
  Receive Date: 20121004
  Receipt Date: 20121004
  Transmission Date: 20130627
  Serious: Yes (Death, Congenital Anomaly)
  Sender: FDA-Public Use
  Company Number: FR-SANOFI-AVENTIS-200913397FR

PATIENT
  Sex: Male

DRUGS (3)
  1. DI-ANTALVIC [Suspect]
     Indication: LUMBAR PAIN
     Dosage: Dose unit: 430 MG
     Route: 064
     Dates: start: 200805
  2. CLOMIFENE CITRATE [Suspect]
     Indication: OVULATION INDUCTION
     Dosage: Dose unit: 50 MG
     Route: 064
     Dates: start: 2008
  3. TETRAZEPAM [Suspect]
     Indication: LUMBAR PAIN
     Dosage: Dose unit: 50 MG
     Route: 064
     Dates: start: 200805

REACTIONS (5)
  - Oesophageal atresia [Unknown]
  - Exposure during pregnancy [Unknown]
  - Tracheal fistula [Unknown]
  - Heart disease congenital [Unknown]
  - Abortion induced [Fatal]
